FAERS Safety Report 13676250 (Version 1)
Quarter: 2017Q2

REPORT INFORMATION
  Report Type: Other
  Country: TW (occurrence: TW)
  Receive Date: 20170622
  Receipt Date: 20170622
  Transmission Date: 20170830
  Serious: Yes (Hospitalization)
  Sender: FDA-Public Use
  Company Number: TW-ORCHID HEALTHCARE-2022379

PATIENT
  Age: 32 Year
  Sex: Male

DRUGS (2)
  1. OLANZAPINE. [Suspect]
     Active Substance: OLANZAPINE
     Indication: SCHIZOPHRENIA
     Route: 048
  2. ESTAZOLAM. [Concomitant]
     Active Substance: ESTAZOLAM
     Route: 048

REACTIONS (1)
  - Hyperammonaemia [Recovered/Resolved]
